FAERS Safety Report 4799824-0 (Version None)
Quarter: 2005Q4

REPORT INFORMATION
  Report Type: 
  Country: None (occurrence: None)
  Receive Date: 20051013
  Receipt Date: 20051013
  Transmission Date: 20060501
  Serious: Yes (Other)
  Sender: FDA-Public Use
  Company Number: None

PATIENT
  Age: 18 Year
  Sex: Female

DRUGS (9)
  1. LAMICTAL [Suspect]
     Dates: start: 20040628, end: 20040809
  2. SEROQUEL [Concomitant]
  3. DEPAKOTE [Concomitant]
  4. KLONOPIN [Concomitant]
  5. OLANZAPINE [Concomitant]
  6. COGENTIN [Concomitant]
  7. AMOXICILLIN [Concomitant]
  8. IBUPROFEN [Concomitant]
  9. ACETAMINOPHEN [Concomitant]

REACTIONS (12)
  - ALANINE AMINOTRANSFERASE INCREASED [None]
  - ANOREXIA [None]
  - ASPARTATE AMINOTRANSFERASE INCREASED [None]
  - CHOLESTASIS [None]
  - DUODENITIS [None]
  - GAMMA-GLUTAMYLTRANSFERASE INCREASED [None]
  - GASTRITIS EROSIVE [None]
  - GASTROOESOPHAGEAL REFLUX DISEASE [None]
  - HEPATIC TRAUMA [None]
  - LYMPHADENOPATHY [None]
  - PHARYNGOLARYNGEAL PAIN [None]
  - PROTHROMBIN TIME SHORTENED [None]
